FAERS Safety Report 8477749-7 (Version None)
Quarter: 2012Q2

REPORT INFORMATION
  Report Type: 
  Country: None (occurrence: None)
  Receive Date: 20120626
  Receipt Date: 20120626
  Transmission Date: 20120825
  Serious: Yes (Hospitalization)
  Sender: FDA-Public Use
  Company Number: None

PATIENT
  Age: 51 Year
  Sex: Male
  Weight: 107.7 kg

DRUGS (1)
  1. DIVALPROEX SODIUM [Suspect]
     Indication: DEPRESSION
     Dosage: 1 TAB AT BEDTIME PO
     Route: 048
     Dates: start: 20111129, end: 20111213

REACTIONS (4)
  - HYPERSENSITIVITY [None]
  - URTICARIA [None]
  - CIRCUMORAL OEDEMA [None]
  - PRURITUS [None]
